FAERS Safety Report 9476553 (Version 1)
Quarter: 2013Q3

REPORT INFORMATION
  Report Type: Spontaneous
  Country: US (occurrence: None)
  Receive Date: 20130823
  Receipt Date: 20130823
  Transmission Date: 20140515
  Serious: Yes (Life-Threatening, Hospitalization)
  Sender: FDA-Public Use
  Company Number: None

PATIENT
  Age: 11 Year
  Sex: Male
  Weight: 42 kg

DRUGS (2)
  1. SODIUM CHLORIDE [Suspect]
     Indication: DEVICE OCCLUSION
     Dosage: 10 ML THREE TIMES DAILY INTO A VEIN
  2. SODIUM CHLORIDE [Suspect]
     Indication: PROPHYLAXIS
     Dosage: 10 ML THREE TIMES DAILY INTO A VEIN

REACTIONS (1)
  - Device related infection [None]
